FAERS Safety Report 24355812 (Version 2)
Quarter: 2024Q4

REPORT INFORMATION
  Report Type: Report from Study
  Country: JP (occurrence: JP)
  Receive Date: 20240924
  Receipt Date: 20241101
  Transmission Date: 20250114
  Serious: Yes (Death, Other)
  Sender: GLAXOSMITHKLINE
  Company Number: JP-GSKPMS-214119-0451-005

PATIENT

DRUGS (14)
  1. DAPRODUSTAT [Suspect]
     Active Substance: DAPRODUSTAT
     Indication: Nephrogenic anaemia
     Dosage: 4 MG, 1D
     Dates: start: 20211204, end: 20220105
  2. DAPRODUSTAT [Suspect]
     Active Substance: DAPRODUSTAT
     Dosage: 6 MG, QD
     Dates: start: 20220106, end: 20220223
  3. DAPRODUSTAT [Suspect]
     Active Substance: DAPRODUSTAT
     Dosage: 8 MG, 1D
     Dates: start: 20220224, end: 20220518
  4. DAPRODUSTAT [Suspect]
     Active Substance: DAPRODUSTAT
     Dosage: 10 MG, 1D
     Dates: start: 20220519, end: 20220709
  5. NIFEDIPINE [Concomitant]
     Active Substance: NIFEDIPINE
     Indication: Hypertension
     Dosage: 40 MG, 1D
     Route: 048
     Dates: end: 20220630
  6. LOSARTAN [Concomitant]
     Active Substance: LOSARTAN
     Indication: Hypertension
     Dosage: 50 MG, 1D
     Route: 048
     Dates: end: 20220709
  7. HYDROCHLOROTHIAZIDE [Concomitant]
     Active Substance: HYDROCHLOROTHIAZIDE
     Indication: Hypertension
     Dosage: 12.5 MG, 1D
     Route: 048
     Dates: end: 20220709
  8. EMPAGLIFLOZIN\LINAGLIPTIN [Concomitant]
     Active Substance: EMPAGLIFLOZIN\LINAGLIPTIN
     Dosage: UNK
     Route: 048
  9. GLICLAZIDE [Concomitant]
     Active Substance: GLICLAZIDE
     Dosage: UNK
     Route: 048
  10. FEBUXOSTAT [Concomitant]
     Active Substance: FEBUXOSTAT
     Dosage: UNK
     Route: 048
  11. LIVALO [Concomitant]
     Active Substance: PITAVASTATIN CALCIUM
     Dosage: UNK
     Route: 048
  12. SAMSCA [Concomitant]
     Active Substance: TOLVAPTAN
     Dosage: UNK
     Route: 048
  13. FUROSEMIDE [Concomitant]
     Active Substance: FUROSEMIDE
     Dosage: UNK
     Route: 048
  14. SPIRONOLACTONE [Concomitant]
     Active Substance: SPIRONOLACTONE
     Dosage: UNK
     Route: 048

REACTIONS (1)
  - Peritonitis [Fatal]

NARRATIVE: CASE EVENT DATE: 20220630
